FAERS Safety Report 6265527-9 (Version None)
Quarter: 2009Q3

REPORT INFORMATION
  Report Type: 
  Country: None (occurrence: None)
  Receive Date: 20090709
  Receipt Date: 20090709
  Transmission Date: 20100115
  Serious: Yes (Disabling, Other)
  Sender: FDA-Public Use
  Company Number: None

PATIENT
  Age: 39 Year
  Sex: Male
  Weight: 88.4514 kg

DRUGS (1)
  1. ATOVAQUONE/PROGUANIL [Suspect]
     Indication: MALARIA PROPHYLAXIS
     Dosage: ONE PILL EVERY DAY
     Dates: start: 20090518, end: 20090604

REACTIONS (5)
  - DEPRESSION [None]
  - INSOMNIA [None]
  - MENTAL STATUS CHANGES [None]
  - MOOD ALTERED [None]
  - SUICIDAL IDEATION [None]
